FAERS Safety Report 26109600 (Version 1)
Quarter: 2025Q4

REPORT INFORMATION
  Report Type: Spontaneous
  Country: EU (occurrence: EU)
  Receive Date: 20251201
  Receipt Date: 20251201
  Transmission Date: 20260118
  Serious: Yes (Other)
  Sender: INCYTE
  Company Number: EU-002147023-NVSC2025DE180236

PATIENT

DRUGS (3)
  1. RUXOLITINIB [Suspect]
     Active Substance: RUXOLITINIB
     Indication: Polycythaemia vera
     Dosage: UNK
     Route: 065
  2. RUXOLITINIB [Suspect]
     Active Substance: RUXOLITINIB
     Dosage: 20 MG (2X20MG)
     Route: 065
  3. FEDRATINIB [Concomitant]
     Active Substance: FEDRATINIB
     Indication: Polycythaemia vera
     Dosage: UNK
     Route: 065

REACTIONS (7)
  - Myelofibrosis [Recovering/Resolving]
  - Portal vein thrombosis [Recovering/Resolving]
  - Haemorrhage [Recovering/Resolving]
  - Anaemia [Recovering/Resolving]
  - Iron deficiency [Recovering/Resolving]
  - Splenomegaly [Recovering/Resolving]
  - Leukocytosis [Recovering/Resolving]
